FAERS Safety Report 22073385 (Version 1)
Quarter: 2023Q1

REPORT INFORMATION
  Report Type: Spontaneous
  Country: PL (occurrence: PL)
  Receive Date: 20230308
  Receipt Date: 20230308
  Transmission Date: 20230418
  Serious: Yes (Hospitalization, Other)
  Sender: FDA-Public Use
  Company Number: PL-VIIV HEALTHCARE LIMITED-PL2023EME034122

PATIENT

DRUGS (1)
  1. TRIUMEQ [Suspect]
     Active Substance: ABACAVIR SULFATE\DOLUTEGRAVIR SODIUM\LAMIVUDINE
     Indication: HIV infection
     Dosage: UNK

REACTIONS (9)
  - Loss of consciousness [Unknown]
  - Tissue infiltration [Unknown]
  - Hepatic enzyme increased [Unknown]
  - Enteral nutrition [Unknown]
  - Rash [Unknown]
  - Pyrexia [Unknown]
  - Fibrin D dimer increased [Unknown]
  - Blood alkaline phosphatase increased [Unknown]
  - Cerebral disorder [Unknown]
